FAERS Safety Report 6900130-6 (Version None)
Quarter: 2010Q3

REPORT INFORMATION
  Report Type: 
  Country: None (occurrence: None)
  Receive Date: 20100803
  Receipt Date: 20100720
  Transmission Date: 20110219
  Serious: No
  Sender: FDA-Public Use
  Company Number: BR-ELI_LILLY_AND_COMPANY-BR201007001313

PATIENT
  Age: 23 Year
  Sex: Male

DRUGS (4)
  1. ZYPREXA [Suspect]
     Indication: BIPOLAR DISORDER
     Dosage: 20 MG, DAILY (1/D)
     Route: 065
     Dates: start: 20100601, end: 20100101
  2. ZYPREXA [Suspect]
     Dosage: 15 MG, DAILY (1/D)
     Route: 065
     Dates: start: 20100101, end: 20100701
  3. ZYPREXA [Suspect]
     Dosage: 20 MG, DAILY (1/D)
     Route: 065
     Dates: start: 20100701
  4. CARBOLITHIUM [Concomitant]
     Indication: BIPOLAR DISORDER
     Dosage: 450 MG, 2/D
     Route: 065
     Dates: start: 20100601

REACTIONS (4)
  - DRUG INEFFECTIVE [None]
  - DYSARTHRIA [None]
  - MOVEMENT DISORDER [None]
  - MUSCULOSKELETAL STIFFNESS [None]
